FAERS Safety Report 5113532-8 (Version None)
Quarter: 2006Q3

REPORT INFORMATION
  Report Type: 
  Country: None (occurrence: None)
  Receive Date: 20060921
  Receipt Date: 20060921
  Transmission Date: 20061208
  Serious: No
  Sender: FDA-Public Use
  Company Number: None

PATIENT
  Age: 47 Year
  Sex: Female
  Weight: 109.9 kg

DRUGS (9)
  1. WARFARIN SODIUM [Suspect]
     Indication: ANTIPHOSPHOLIPID ANTIBODIES
     Dosage: 4 MG/6MG PO QHS
     Route: 048
  2. HYDRALAZINE [Concomitant]
  3. PREDNISONE [Concomitant]
  4. ENALAPRIL [Concomitant]
  5. METOPROLOL TARTRATE [Concomitant]
  6. CALCIUM ACETATE [Concomitant]
  7. . [Concomitant]
  8. AMLODIPINE [Concomitant]
  9. ISOSORBIDE MONONITRATE [Concomitant]

REACTIONS (3)
  - GASTROINTESTINAL HAEMORRHAGE [None]
  - INTERNATIONAL NORMALISED RATIO INCREASED [None]
  - RASH [None]
